FAERS Safety Report 7305381-7 (Version None)
Quarter: 2011Q1

REPORT INFORMATION
  Report Type: 
  Country: None (occurrence: None)
  Receive Date: 20110222
  Receipt Date: 20110214
  Transmission Date: 20110831
  Serious: Yes (Other)
  Sender: FDA-Public Use
  Company Number: PHHY2011NO12259

PATIENT
  Age: 71 Year
  Sex: Female

DRUGS (1)
  1. VOLTAREN [Suspect]

REACTIONS (5)
  - AMNESIA [None]
  - APHASIA [None]
  - HAEMORRHAGE INTRACRANIAL [None]
  - PARAESTHESIA [None]
  - COORDINATION ABNORMAL [None]
